FAERS Safety Report 8166219-1 (Version None)
Quarter: 2012Q1

REPORT INFORMATION
  Report Type: 
  Country: None (occurrence: None)
  Receive Date: 20120227
  Receipt Date: 20110606
  Transmission Date: 20120608
  Serious: No
  Sender: FDA-Public Use
  Company Number: US-MYLANLABS-2011S1009655

PATIENT
  Age: 37 Year
  Sex: Male

DRUGS (6)
  1. AMNESTEEM [Suspect]
     Indication: ACNE
     Route: 048
     Dates: start: 20100914, end: 20110506
  2. SUBOXONE [Concomitant]
  3. ADDERALL 5 [Concomitant]
  4. ALBUTEROL [Concomitant]
  5. AMNESTEEM [Suspect]
     Route: 048
     Dates: start: 20100914, end: 20110506
  6. IBUPROFEN [Concomitant]

REACTIONS (1)
  - ARTHRALGIA [None]
